FAERS Safety Report 4722637-2 (Version None)
Quarter: 2005Q3

REPORT INFORMATION
  Report Type: 
  Country: None (occurrence: None)
  Receive Date: 20050719
  Receipt Date: 20040928
  Transmission Date: 20060218
  Serious: Yes (Hospitalization)
  Sender: FDA-Public Use
  Company Number: 2004236415US

PATIENT
  Age: 74 Year
  Sex: Female

DRUGS (5)
  1. CELEBREX [Suspect]
     Dosage: 200 MG, QD
     Dates: start: 20000105
  2. TERAZOSIN HCL [Concomitant]
  3. METOCLOPRAMIDE HYDROCHLORIDE [Concomitant]
  4. NORVASC [Concomitant]
  5. LIPITOR [Concomitant]

REACTIONS (1)
  - CEREBROVASCULAR ACCIDENT [None]
